FAERS Safety Report 9417985 (Version 1)
Quarter: 2013Q3

REPORT INFORMATION
  Report Type: Spontaneous
  Country: US (occurrence: US)
  Receive Date: 20130724
  Receipt Date: 20130724
  Transmission Date: 20140515
  Serious: No
  Sender: FDA-Public Use
  Company Number: US-BAUSCH-BL-2012-000956

PATIENT
  Age: 58 Year
  Sex: Female

DRUGS (3)
  1. OPCON-A [Suspect]
     Indication: EYE PRURITUS
     Dosage: 1 DROP; TWICE A DAY; OPHTHALMIC
     Route: 047
     Dates: start: 2011, end: 20120914
  2. OPCON-A [Suspect]
     Indication: OCULAR HYPERAEMIA
  3. OPCON-A [Suspect]
     Indication: DRY EYE

REACTIONS (3)
  - Off label use [Recovered/Resolved]
  - Wrong technique in drug usage process [Recovered/Resolved]
  - Drug ineffective [Unknown]
